FAERS Safety Report 11131471 (Version 1)
Quarter: 2015Q2

REPORT INFORMATION
  Report Type: Spontaneous
  Country: GB (occurrence: GB)
  Receive Date: 20150522
  Receipt Date: 20150522
  Transmission Date: 20150821
  Serious: Yes (Other)
  Sender: FDA-Public Use
  Company Number: GB-JNJFOC-20150505935

PATIENT
  Sex: Female

DRUGS (3)
  1. PARACETAMOL [Suspect]
     Active Substance: ACETAMINOPHEN
     Indication: INFLUENZA
     Dosage: AROUND 12 HOURS
     Route: 065
  2. PARACETAMOL [Suspect]
     Active Substance: ACETAMINOPHEN
     Route: 065
  3. LEMSIP COLD + FLU [Suspect]
     Active Substance: ACETAMINOPHEN\PHENYLEPHRINE
     Indication: INFLUENZA
     Route: 065

REACTIONS (2)
  - Accidental overdose [Unknown]
  - Drug ineffective [Unknown]
